FAERS Safety Report 19845350 (Version 1)
Quarter: 2021Q3

REPORT INFORMATION
  Report Type: Spontaneous
  Country: US (occurrence: US)
  Receive Date: 20210916
  Receipt Date: 20210916
  Transmission Date: 20211014
  Serious: No
  Sender: FDA-Public Use
  Company Number: None

PATIENT
  Age: 82 Year
  Sex: Female
  Weight: 48.15 kg

DRUGS (6)
  1. VITAMIN D [Concomitant]
     Active Substance: VITAMIN D NOS
  2. ATIVAN [Concomitant]
     Active Substance: LORAZEPAM
  3. TRAVATAN Z [Concomitant]
     Active Substance: TRAVOPROST
  4. CAPECITABINE. [Suspect]
     Active Substance: CAPECITABINE
     Indication: COLON CANCER
     Route: 048
     Dates: start: 20210724
  5. IPRATROPIUM [Concomitant]
     Active Substance: IPRATROPIUM
  6. ZESTORETIC [Concomitant]
     Active Substance: HYDROCHLOROTHIAZIDE\LISINOPRIL

REACTIONS (6)
  - Hypertension [None]
  - Fatigue [None]
  - Paraesthesia [None]
  - Dizziness [None]
  - Platelet count decreased [None]
  - Stomatitis [None]

NARRATIVE: CASE EVENT DATE: 20210915
